FAERS Safety Report 5570581-3 (Version None)
Quarter: 2007Q4

REPORT INFORMATION
  Report Type: 
  Country: None (occurrence: None)
  Receive Date: 20071221
  Receipt Date: 20071214
  Transmission Date: 20080405
  Serious: Yes (Death)
  Sender: FDA-Public Use
  Company Number: US-KINGPHARMUSA00001-K200701601

PATIENT

DRUGS (1)
  1. AVINZA [Suspect]

REACTIONS (1)
  - DRUG TOXICITY [None]
